FAERS Safety Report 8619654 (Version 3)
Quarter: 2013Q3

REPORT INFORMATION
  Report Type: Report from Study
  Country: US (occurrence: US)
  Receive Date: 20120618
  Receipt Date: 20130807
  Transmission Date: 20140515
  Serious: Yes (Hospitalization)
  Sender: FDA-Public Use
  Company Number: US-ROCHE-1077695

PATIENT
  Age: 63 Year
  Sex: Female
  Weight: 68.3 kg

DRUGS (3)
  1. BEVACIZUMAB [Suspect]
     Indication: FALLOPIAN TUBE CANCER
     Dosage: LAST ADMINISTERED DOSE: 10/MAY/2013
     Route: 042
     Dates: start: 20110609
  2. CARBOPLATIN [Suspect]
     Indication: FALLOPIAN TUBE CANCER
     Dosage: AUC 6, ON DAY1 (CYCLE 1 -6)
     Route: 042
     Dates: start: 20110609
  3. PACLITAXEL [Suspect]
     Indication: FALLOPIAN TUBE CANCER
     Dosage: (CYCLE 1 -6)
     Route: 042
     Dates: start: 20110609

REACTIONS (2)
  - Small intestinal obstruction [Not Recovered/Not Resolved]
  - Small intestinal obstruction [Recovered/Resolved]
